FAERS Safety Report 7158205-5 (Version None)
Quarter: 2010Q4

REPORT INFORMATION
  Report Type: 
  Country: None (occurrence: None)
  Receive Date: 20101214
  Receipt Date: 20100322
  Transmission Date: 20110411
  Serious: No
  Sender: FDA-Public Use
  Company Number: US-ASTRAZENECA-2010SE12675

PATIENT
  Age: 86 Year
  Sex: Female
  Weight: 49.9 kg

DRUGS (11)
  1. CRESTOR [Suspect]
     Route: 048
     Dates: start: 20100227
  2. OMEPRAZOLE [Concomitant]
  3. LUMA GEN [Concomitant]
  4. POTASSIUM CHLORIDE [Concomitant]
  5. LASIX [Concomitant]
  6. VITAMIN B COMPLEX CAP [Concomitant]
  7. VIT E [Concomitant]
  8. CENTRUM [Concomitant]
  9. FISH OIL [Concomitant]
  10. SILENIUM [Concomitant]
  11. CALTRATE [Concomitant]

REACTIONS (2)
  - COUGH [None]
  - DYSPNOEA [None]
